FAERS Safety Report 9214846 (Version 3)
Quarter: 2013Q3

REPORT INFORMATION
  Report Type: Report from Study
  Country: US (occurrence: US)
  Receive Date: 20130405
  Receipt Date: 20130829
  Transmission Date: 20140515
  Serious: Yes (Other)
  Sender: FDA-Public Use
  Company Number: US-ABBOTT-13P-163-1070800-00

PATIENT
  Age: 66 Year
  Sex: Female

DRUGS (1)
  1. CREON [Suspect]
     Indication: PANCREATIC INSUFFICIENCY

REACTIONS (16)
  - Surgery [Unknown]
  - Neoplasm malignant [Unknown]
  - Infection [Recovering/Resolving]
  - Malaise [Recovering/Resolving]
  - Gastrointestinal disorder [Unknown]
  - Diabetes mellitus [Unknown]
  - Pancreatectomy [Unknown]
  - Surgery [Unknown]
  - Type 1 diabetes mellitus [Unknown]
  - Malaise [Unknown]
  - Weight decreased [Unknown]
  - Weight increased [Recovering/Resolving]
  - Asthenia [Recovering/Resolving]
  - Dyspepsia [Unknown]
  - Blood glucose increased [Unknown]
  - Pain [Unknown]
